FAERS Safety Report 18420555 (Version 2)
Quarter: 2020Q4

REPORT INFORMATION
  Report Type: Report from Study
  Country: DE (occurrence: DE)
  Receive Date: 20201023
  Receipt Date: 20201027
  Transmission Date: 20210114
  Serious: Yes (Death, Life-Threatening, Other)
  Sender: FDA-Public Use
  Company Number: DE-PFIZER INC-2020410204

PATIENT
  Age: 8 Year
  Sex: Female

DRUGS (4)
  1. METHOTREXATE SODIUM. [Suspect]
     Active Substance: METHOTREXATE SODIUM
     Dosage: UNK, (5G MTX/M2 BODY SURFACE AREA)
  2. CALCIUM FOLINATE [Concomitant]
     Active Substance: LEUCOVORIN CALCIUM
     Indication: PROPHYLAXIS
     Dosage: 0.05 MG/KG, (MG/KG.UM)
  3. CALCIUM FOLINATE [Concomitant]
     Active Substance: LEUCOVORIN CALCIUM
     Dosage: 0.7 MG/KG, (MG/KG.UM, INCREASING DOSES)
  4. METHOTREXATE SODIUM. [Suspect]
     Active Substance: METHOTREXATE SODIUM
     Indication: ACUTE LYMPHOCYTIC LEUKAEMIA RECURRENT
     Dosage: UNK (HIGH-DOSE)

REACTIONS (7)
  - Cholestasis [Fatal]
  - Drug clearance decreased [Unknown]
  - Cardiac failure [Fatal]
  - Hepatic failure [Fatal]
  - Pancytopenia [Recovered/Resolved]
  - Congestive cardiomyopathy [Fatal]
  - Pericardial effusion [Fatal]
